FAERS Safety Report 7015822 (Version 29)
Quarter: 2014Q1

REPORT INFORMATION
  Report Type: Spontaneous
  Country: CH (occurrence: CH)
  Receive Date: 20090610
  Receipt Date: 20140207
  Transmission Date: 20141002
  Serious: Yes (Other)
  Sender: FDA-Public Use
  Company Number: CH-BIOGENIDEC-2009BI016635

PATIENT
  Age: 40 Year
  Sex: Male
  Weight: 74 kg

DRUGS (4)
  1. TYSABRI [Suspect]
     Indication: MULTIPLE SCLEROSIS
     Route: 042
     Dates: start: 200705, end: 20090420
  2. TYSABRI [Suspect]
     Indication: MULTIPLE SCLEROSIS
     Route: 042
     Dates: start: 20090529, end: 200906
  3. MINIRIN [Concomitant]
     Indication: ENURESIS
     Dates: start: 20071029
  4. CIALIS [Concomitant]
     Indication: ERECTILE DYSFUNCTION
     Dates: start: 20070101

REACTIONS (7)
  - Progressive multifocal leukoencephalopathy [Recovered/Resolved]
  - Meningitis herpes [Recovered/Resolved]
  - Immune reconstitution inflammatory syndrome [Recovered/Resolved]
  - Ataxia [Not Recovered/Not Resolved]
  - Hypertonic bladder [Not Recovered/Not Resolved]
  - Sensory loss [Not Recovered/Not Resolved]
  - Hemianopia [Not Recovered/Not Resolved]
